FAERS Safety Report 21231816 (Version 1)
Quarter: 2022Q3

REPORT INFORMATION
  Report Type: Spontaneous
  Country: FR (occurrence: FR)
  Receive Date: 20220819
  Receipt Date: 20220819
  Transmission Date: 20221027
  Serious: Yes (Other)
  Sender: FDA-Public Use
  Company Number: None

PATIENT
  Age: 78 Year
  Sex: Female
  Weight: 78 kg

DRUGS (9)
  1. VENLAFAXINE [Suspect]
     Active Substance: VENLAFAXINE HYDROCHLORIDE
     Indication: Bipolar II disorder
     Dosage: UNIT DOSE: 225 MG, FREQUENCY TIME-1 DAY
  2. QUETIAPINE [Suspect]
     Active Substance: QUETIAPINE
     Indication: Bipolar II disorder
     Dosage: UNIT DOSE: 400 MG, FREQUENCY TIME-1 DAY
  3. MIRTAZAPINE [Suspect]
     Active Substance: MIRTAZAPINE
     Indication: Bipolar II disorder
     Dosage: UNIT DOSE: 45 MG, FREQUENCY TIME-1 DAY, THERAPY END DATE: NOT ASKED
     Dates: start: 2018
  4. FLECAINIDE [Suspect]
     Active Substance: FLECAINIDE
     Indication: Atrial fibrillation
     Dosage: UNIT DOSE: 100 MG, FREQUENCY TIME-1 DAY, THERAPY START DATE: NOT ASKED
     Dates: end: 20220706
  5. BISOPROLOL FUMARATE [Concomitant]
     Active Substance: BISOPROLOL FUMARATE
     Indication: Product used for unknown indication
     Dosage: UNIT DOSE: 2.5 MG, FREQUENCY TIME-1 DAY
  6. ATORVASTATIN [Concomitant]
     Active Substance: ATORVASTATIN
     Indication: Dyslipidaemia
     Dosage: UNIT DOSE: 10 MG, FREQUENCY TIME-1 DAY
  7. APIXABAN [Concomitant]
     Active Substance: APIXABAN
     Indication: Thrombosis prophylaxis
     Dosage: UNIT DOSE: 5 MG, FREQUENCY TIME-1 DAY
  8. ESIDREX [Concomitant]
     Active Substance: HYDROCHLOROTHIAZIDE
     Indication: Product used for unknown indication
     Dosage: UNIT DOSE: 2.5 MG, FREQUENCY TIME-1 DAY
  9. ALPRAZOLAM [Concomitant]
     Active Substance: ALPRAZOLAM
     Indication: Product used for unknown indication
     Dosage: UNIT DOSE: 1 MG, FREQUENCY TIME-1 DAY

REACTIONS (1)
  - Electrocardiogram QT prolonged [Recovered/Resolved]

NARRATIVE: CASE EVENT DATE: 20220706
